FAERS Safety Report 15314854 (Version 1)
Quarter: 2018Q3

REPORT INFORMATION
  Report Type: Spontaneous
  Country: US (occurrence: US)
  Receive Date: 20180815
  Receipt Date: 20180815
  Transmission Date: 20181010
  Serious: Yes (Other)
  Sender: FDA-Public Use
  Company Number: None

PATIENT
  Age: 11 Year
  Sex: Female
  Weight: 45.9 kg

DRUGS (2)
  1. CHILDREN MULTI VITAMINN [Concomitant]
  2. DRAMAMINE LESS DROWSY [Suspect]
     Active Substance: MECLIZINE HYDROCHLORIDE
     Indication: MOTION SICKNESS
     Dosage: ?          QUANTITY:1 TABLET(S);?
     Route: 048
     Dates: start: 20180810, end: 20180810

REACTIONS (6)
  - Eye pain [None]
  - Aggression [None]
  - Visual impairment [None]
  - Hallucination [None]
  - Confusional state [None]
  - Dysarthria [None]

NARRATIVE: CASE EVENT DATE: 20180810
